FAERS Safety Report 9336608 (Version 1)
Quarter: 2013Q2

REPORT INFORMATION
  Report Type: Report from Study
  Country: US (occurrence: US)
  Receive Date: 20130607
  Receipt Date: 20130607
  Transmission Date: 20140414
  Serious: Yes (Hospitalization)
  Sender: FDA-Public Use
  Company Number: US-ABBOTT-13P-163-1097701-00

PATIENT
  Sex: Female
  Weight: 72.64 kg

DRUGS (8)
  1. HUMIRA [Suspect]
     Indication: CROHN^S DISEASE
     Dosage: ONE DOSE
  2. HUMIRA [Suspect]
     Dosage: ONE DOSE
     Dates: end: 2010
  3. HUMIRA [Suspect]
  4. HUMIRA [Suspect]
     Dates: end: 201303
  5. HUMIRA [Suspect]
     Dates: start: 201303
  6. IMURAN [Concomitant]
     Indication: CROHN^S DISEASE
  7. DULERA [Concomitant]
     Indication: ASTHMA
  8. LOESTRIN [Concomitant]
     Indication: CONTRACEPTION

REACTIONS (10)
  - Female genital tract fistula [Not Recovered/Not Resolved]
  - Crohn^s disease [Recovered/Resolved]
  - Abscess [Recovered/Resolved]
  - Abdominal pain [Recovered/Resolved]
  - Small intestinal stenosis [Recovered/Resolved]
  - Defaecation urgency [Not Recovered/Not Resolved]
  - Rectal stenosis [Not Recovered/Not Resolved]
  - Faecaloma [Unknown]
  - Abdominal pain [Not Recovered/Not Resolved]
  - Haematochezia [Not Recovered/Not Resolved]
